FAERS Safety Report 17447282 (Version 1)
Quarter: 2020Q1

REPORT INFORMATION
  Report Type: Spontaneous
  Country: US (occurrence: US)
  Receive Date: 20200221
  Receipt Date: 20200221
  Transmission Date: 20200409
  Serious: Yes (Hospitalization)
  Sender: FDA-Public Use
  Company Number: US-ELI_LILLY_AND_COMPANY-US202002009185

PATIENT
  Age: 38 Year
  Sex: Male

DRUGS (1)
  1. SOMATROPIN. [Suspect]
     Active Substance: SOMATROPIN
     Indication: HYPOGLYCAEMIA
     Dosage: 0.1 MG/KG, DAILY
     Route: 030

REACTIONS (3)
  - Off label use [Unknown]
  - Arthritis [Unknown]
  - Hypoglycaemia [Recovered/Resolved]
